FAERS Safety Report 8776832 (Version 2)
Quarter: 2012Q4

REPORT INFORMATION
  Report Type: 
  Country: US (occurrence: US)
  Receive Date: 20120911
  Receipt Date: 20121009
  Transmission Date: 20130627
  Serious: Yes (Other)
  Sender: FDA-Public Use
  Company Number: US-ELI_LILLY_AND_COMPANY-US201209000800

PATIENT
  Sex: Female

DRUGS (4)
  1. FORTEO [Suspect]
     Indication: OSTEOPOROSIS
     Dosage: 20 u, qd
     Route: 058
     Dates: start: 201107
  2. CALCIUM + VITAMIN D [Concomitant]
     Dosage: UNK, qd
  3. MULTIVITAMIN [Concomitant]
     Dosage: UNK
  4. MAG OXIDE [Concomitant]
     Dosage: 400 mg, qd

REACTIONS (1)
  - Squamous cell carcinoma [Unknown]
